FAERS Safety Report 11294217 (Version 1)
Quarter: 2015Q3

REPORT INFORMATION
  Report Type: Spontaneous
  Country: US (occurrence: US)
  Receive Date: 20150722
  Receipt Date: 20150722
  Transmission Date: 20151125
  Serious: No
  Sender: FDA-Public Use
  Company Number: US-ELI_LILLY_AND_COMPANY-US200802001865

PATIENT
  Sex: Female

DRUGS (1)
  1. EVISTA [Suspect]
     Active Substance: RALOXIFENE HYDROCHLORIDE
     Dosage: 60 MG, UNK
     Dates: start: 2008, end: 20080202

REACTIONS (9)
  - Headache [Recovered/Resolved]
  - Vision blurred [Recovered/Resolved]
  - Pollakiuria [Unknown]
  - Paraesthesia [Recovered/Resolved]
  - Discomfort [Recovered/Resolved]
  - Muscle tightness [Unknown]
  - Dry mouth [Recovered/Resolved]
  - Muscle spasms [Recovered/Resolved]
  - Thirst [Unknown]

NARRATIVE: CASE EVENT DATE: 2008
